FAERS Safety Report 8461259-7 (Version None)
Quarter: 2012Q2

REPORT INFORMATION
  Report Type: 
  Country: None (occurrence: None)
  Receive Date: 20120619
  Receipt Date: 20120619
  Transmission Date: 20120825
  Serious: Yes (Other)
  Sender: FDA-Public Use
  Company Number: None

PATIENT
  Sex: Female

DRUGS (1)
  1. ZUTROPHANOL PARTRAPE 2.5MG/ML MYLAN BUTORPHANOL TARTRATE [Suspect]
     Indication: MIGRAINE
     Dosage: 2.5MG/ML ONCE A WEEK OTHER

REACTIONS (4)
  - VERBIGERATION [None]
  - MUSCULOSKELETAL DISORDER [None]
  - HEADACHE [None]
  - ABDOMINAL PAIN UPPER [None]
